FAERS Safety Report 13518615 (Version 2)
Quarter: 2017Q2

REPORT INFORMATION
  Report Type: Spontaneous
  Country: US (occurrence: US)
  Receive Date: 20170505
  Receipt Date: 20170530
  Transmission Date: 20170830
  Serious: Yes (Hospitalization, Other)
  Sender: FDA-Public Use
  Company Number: US-JNJFOC-20170500189

PATIENT
  Sex: Male
  Weight: 98.43 kg

DRUGS (5)
  1. XARELTO [Suspect]
     Active Substance: RIVAROXABAN
     Indication: CEREBROVASCULAR ACCIDENT PROPHYLAXIS
     Route: 048
     Dates: start: 2015
  2. XARELTO [Suspect]
     Active Substance: RIVAROXABAN
     Indication: ATRIAL FIBRILLATION
     Route: 048
     Dates: start: 2015
  3. XARELTO [Suspect]
     Active Substance: RIVAROXABAN
     Indication: ATRIAL FIBRILLATION
     Dosage: STOPPED FOR 2 DAYS
     Route: 048
     Dates: start: 2013, end: 2015
  4. XARELTO [Suspect]
     Active Substance: RIVAROXABAN
     Indication: CEREBROVASCULAR ACCIDENT PROPHYLAXIS
     Dosage: STOPPED FOR 2 DAYS
     Route: 048
     Dates: start: 2013, end: 2015
  5. ASPIRIN. [Suspect]
     Active Substance: ASPIRIN
     Indication: PLATELET AGGREGATION ABNORMAL
     Route: 065

REACTIONS (4)
  - Tooth infection [Recovered/Resolved]
  - Surgery [Unknown]
  - Wound haemorrhage [Recovered/Resolved]
  - Tooth injury [Not Recovered/Not Resolved]

NARRATIVE: CASE EVENT DATE: 2015
